FAERS Safety Report 9927481 (Version 2)
Quarter: 2014Q2

REPORT INFORMATION
  Report Type: Spontaneous
  Country: JP (occurrence: JP)
  Receive Date: 20140227
  Receipt Date: 20140623
  Transmission Date: 20141212
  Serious: Yes (Other)
  Sender: FDA-Public Use
  Company Number: PHHY2014JP023254

PATIENT
  Age: 74 Year
  Sex: Male

DRUGS (3)
  1. ZOMETA [Suspect]
     Indication: PLASMA CELL MYELOMA
     Dosage: 4 MG, PER ADMINISTRATION
     Route: 041
     Dates: start: 20110711, end: 20130917
  2. MELPHALAN [Concomitant]
     Dosage: UNK UKN, UNK
     Dates: start: 20110711, end: 20140512
  3. DEXAMETHASONE [Concomitant]
     Dosage: UNK UKN, UNK
     Dates: end: 20140512

REACTIONS (3)
  - Osteonecrosis of jaw [Recovered/Resolved]
  - Mouth ulceration [Unknown]
  - Exposed bone in jaw [Unknown]
